FAERS Safety Report 6693344-4 (Version None)
Quarter: 2010Q2

REPORT INFORMATION
  Report Type: 
  Country: None (occurrence: None)
  Receive Date: 20100420
  Receipt Date: 20100412
  Transmission Date: 20101027
  Serious: Yes (Other)
  Sender: FDA-Public Use
  Company Number: 2009SP019923

PATIENT
  Age: 47 Year
  Sex: Female
  Weight: 72.5755 kg

DRUGS (1)
  1. DR. SCHOLL'S LIQUID CORN/CALLUS REMOVER (17 PCT) [Suspect]
     Indication: HYPERKERATOSIS
     Dosage: QD;TOP
     Route: 061
     Dates: start: 20090721, end: 20090722

REACTIONS (8)
  - ABASIA [None]
  - ABSCESS LIMB [None]
  - BURNS SECOND DEGREE [None]
  - CAUSTIC INJURY [None]
  - IMPAIRED WORK ABILITY [None]
  - SCAB [None]
  - WEIGHT BEARING DIFFICULTY [None]
  - WOUND SECRETION [None]
